FAERS Safety Report 10626619 (Version 2)
Quarter: 2014Q4

REPORT INFORMATION
  Report Type: Spontaneous
  Country: FI (occurrence: FI)
  Receive Date: 20141204
  Receipt Date: 20141226
  Transmission Date: 20150529
  Serious: Yes (Other)
  Sender: FDA-Public Use
  Company Number: FI-GE HEALTHCARE MEDICAL DIAGNOSTICS-OMPQ-PR-1411S-1528

PATIENT
  Age: 57 Year
  Sex: Male

DRUGS (2)
  1. OMNIPAQUE [Suspect]
     Active Substance: IOHEXOL
     Indication: DIAGNOSTIC PROCEDURE
  2. OMNIPAQUE [Suspect]
     Active Substance: IOHEXOL
     Indication: PRODUCT USED FOR UNKNOWN INDICATION
     Route: 042
     Dates: start: 20141127, end: 20141127

REACTIONS (5)
  - Urticaria [Recovered/Resolved]
  - Blood pressure increased [Recovered/Resolved]
  - Erythema [Recovered/Resolved]
  - Increased upper airway secretion [Recovered/Resolved]
  - Feeling hot [Recovered/Resolved]

NARRATIVE: CASE EVENT DATE: 20141127
